FAERS Safety Report 18220950 (Version 2)
Quarter: 2020Q4

REPORT INFORMATION
  Report Type: Report from Study
  Country: CA (occurrence: CA)
  Receive Date: 20200902
  Receipt Date: 20201001
  Transmission Date: 20210113
  Serious: Yes (Death, Other)
  Sender: FDA-Public Use
  Company Number: CA-REGENERON PHARMACEUTICALS, INC.-2020-32597

PATIENT

DRUGS (2)
  1. EYLEA [Suspect]
     Active Substance: AFLIBERCEPT
     Indication: NEOVASCULAR AGE-RELATED MACULAR DEGENERATION
     Dosage: OS
     Dates: start: 20200311
  2. EYLEA [Suspect]
     Active Substance: AFLIBERCEPT
     Dosage: OU
     Dates: start: 20200506

REACTIONS (2)
  - Death [Fatal]
  - Dialysis [Unknown]
